FAERS Safety Report 10729310 (Version 3)
Quarter: 2015Q1

REPORT INFORMATION
  Report Type: Spontaneous
  Country: DE (occurrence: DE)
  Receive Date: 20150122
  Receipt Date: 20150209
  Transmission Date: 20150721
  Serious: Yes (Hospitalization, Other)
  Sender: FDA-Public Use
  Company Number: DE-MYLANLABS-2015M1000848

PATIENT

DRUGS (17)
  1. KREON 25000 [Concomitant]
     Active Substance: PANCRELIPASE
     Indication: PRODUCT USED FOR UNKNOWN INDICATION
     Dosage: 300MG PANCREAS POWDER
     Route: 048
  2. PANTOZOL [Concomitant]
     Active Substance: PANTOPRAZOLE SODIUM
     Indication: GASTRITIS PROPHYLAXIS
     Dosage: (0-0-1)
     Route: 048
  3. FOLSAN [Concomitant]
     Active Substance: FOLIC ACID
     Indication: PRODUCT USED FOR UNKNOWN INDICATION
     Dosage: 5 MG, QD (1-0-0)
     Route: 048
  4. PANTOPRAZOLE [Suspect]
     Active Substance: PANTOPRAZOLE SODIUM
     Indication: GASTRIC DISORDER
     Dosage: 40 MG, QD
     Route: 048
     Dates: start: 20130205
  5. MCP [Suspect]
     Active Substance: METOCLOPRAMIDE HYDROCHLORIDE
     Indication: PROCEDURAL NAUSEA
     Dosage: UNK
     Route: 048
     Dates: start: 20130214, end: 20130224
  6. SALBUHEXAL                         /00139501/ [Concomitant]
     Indication: LUNG DISORDER
     Dosage: UNK
  7. TILIDIN [Concomitant]
     Active Substance: NALOXONE HYDROCHLORIDE\TILIDINE HYDROCHLORIDE
     Indication: PAIN
     Dosage: WHEN NEEDED
     Route: 048
  8. NOVALGIN [Concomitant]
     Active Substance: METAMIZOLE SODIUM
     Indication: PRODUCT USED FOR UNKNOWN INDICATION
     Dosage: UNK, PRN
     Route: 048
  9. VOLTAREN [Suspect]
     Active Substance: DICLOFENAC SODIUM
     Indication: KNEE DEFORMITY
     Dosage: 1-1-1
     Route: 048
     Dates: start: 20130205, end: 20130224
  10. DUORESP [Concomitant]
     Indication: LUNG DISORDER
     Dosage: UNK
  11. SAROTENA [Concomitant]
     Indication: PRODUCT USED FOR UNKNOWN INDICATION
     Dosage: 25 MG (0-0-1)
     Route: 048
  12. FRAGMIN [Suspect]
     Active Substance: DALTEPARIN SODIUM
     Indication: THROMBOSIS
     Dosage: UNK
     Route: 058
     Dates: start: 20130215
  13. BROMELAIN [Suspect]
     Active Substance: BROMELAINS
     Indication: KNEE OPERATION
     Dosage: 0-0-1
     Route: 048
     Dates: start: 20130206, end: 20130224
  14. NOVAMINSULFON [Suspect]
     Active Substance: METAMIZOLE
     Indication: PAIN
     Dosage: UNK
     Route: 048
     Dates: start: 20130205, end: 20130224
  15. LYRICA [Suspect]
     Active Substance: PREGABALIN
     Indication: ANXIETY DISORDER
     Dosage: 50 MG (1 DAILY EVENING)
     Route: 048
     Dates: start: 201204, end: 20130224
  16. XARELTO [Suspect]
     Active Substance: RIVAROXABAN
     Indication: ARTHROSCOPY
     Dosage: 15 MG, QD
     Route: 048
     Dates: start: 20130206, end: 20130214
  17. VOLTAREN [Suspect]
     Active Substance: DICLOFENAC SODIUM
     Indication: INFLAMMATION

REACTIONS (15)
  - Acute hepatic failure [Recovering/Resolving]
  - Abdominal pain [Unknown]
  - Pancreatitis [Recovered/Resolved]
  - Constipation [Unknown]
  - Vomiting [Unknown]
  - Haemochromatosis [Unknown]
  - Pneumonia [Unknown]
  - Weight decreased [Unknown]
  - Cholecystitis [Recovered/Resolved]
  - Hepatitis acute [Unknown]
  - Chromaturia [Unknown]
  - Ascites [Recovering/Resolving]
  - Feeling abnormal [Unknown]
  - Transaminases increased [Recovering/Resolving]
  - Respiratory failure [Recovering/Resolving]

NARRATIVE: CASE EVENT DATE: 20130222
